FAERS Safety Report 11302919 (Version 12)
Quarter: 2016Q4

REPORT INFORMATION
  Report Type: Spontaneous
  Country: CA (occurrence: CA)
  Receive Date: 20150723
  Receipt Date: 20161104
  Transmission Date: 20170206
  Serious: Yes (Other)
  Sender: FDA-Public Use
  Company Number: CA-PFIZER INC-2014269159

PATIENT
  Age: 52 Year
  Sex: Female

DRUGS (6)
  1. METHOTREXATE SODIUM. [Suspect]
     Active Substance: METHOTREXATE SODIUM
     Indication: RHEUMATOID ARTHRITIS
     Dosage: 25 MG, WEEKLY
     Route: 058
     Dates: start: 20080925
  2. CORTISONE [Concomitant]
     Active Substance: CORTISONE\HYDROCORTISONE
     Dosage: UNK
     Route: 048
  3. ACTEMRA [Concomitant]
     Active Substance: TOCILIZUMAB
     Dosage: UNK
     Dates: start: 20140424
  4. ACTEMRA [Concomitant]
     Active Substance: TOCILIZUMAB
     Dosage: 8 MG/KG, UNK
     Dates: start: 20110516
  5. CELEBREX [Suspect]
     Active Substance: CELECOXIB
     Dosage: 200 MG, DAILY
     Route: 048
  6. XELJANZ [Suspect]
     Active Substance: TOFACITINIB CITRATE
     Indication: RHEUMATOID ARTHRITIS
     Dosage: 5 MG, 2X/DAY
     Route: 048
     Dates: start: 20140915, end: 2016

REACTIONS (21)
  - Wound [Unknown]
  - Dry skin [Not Recovered/Not Resolved]
  - Condition aggravated [Recovering/Resolving]
  - Skin ulcer [Recovering/Resolving]
  - Sciatic nerve injury [Not Recovered/Not Resolved]
  - Drug ineffective [Unknown]
  - Impaired healing [Recovering/Resolving]
  - Varicose ulceration [Recovering/Resolving]
  - Influenza [Recovering/Resolving]
  - Osteitis [Recovered/Resolved]
  - Hypoaesthesia [Not Recovered/Not Resolved]
  - Weight decreased [Unknown]
  - Hypertonic bladder [Not Recovered/Not Resolved]
  - Pain in extremity [Not Recovered/Not Resolved]
  - Dry mouth [Not Recovered/Not Resolved]
  - Sciatica [Not Recovered/Not Resolved]
  - Underdose [Unknown]
  - Product use issue [Unknown]
  - Nail infection [Not Recovered/Not Resolved]
  - Rheumatoid arthritis [Recovering/Resolving]
  - Arthropathy [Not Recovered/Not Resolved]

NARRATIVE: CASE EVENT DATE: 201409
